FAERS Safety Report 16414311 (Version 4)
Quarter: 2019Q3

REPORT INFORMATION
  Report Type: Spontaneous
  Country: US (occurrence: US)
  Receive Date: 20190611
  Receipt Date: 20190708
  Transmission Date: 20191004
  Serious: Yes (Hospitalization, Other)
  Sender: FDA-Public Use
  Company Number: US-SUNOVION-2019SUN002369

PATIENT
  Sex: Male
  Weight: 138.78 kg

DRUGS (5)
  1. ANORO ELLIPTA [Concomitant]
     Active Substance: UMECLIDINIUM BROMIDE\VILANTEROL TRIFENATATE
  2. STIOLTO RESPIMAT [Concomitant]
     Active Substance: OLODATEROL HYDROCHLORIDE\TIOTROPIUM BROMIDE MONOHYDRATE
  3. UTIBRON NEOHALER [Suspect]
     Active Substance: GLYCOPYRROLATE\INDACATEROL MALEATE
     Dosage: UNK, BID
     Route: 055
     Dates: start: 20180215
  4. UTIBRON NEOHALER [Suspect]
     Active Substance: GLYCOPYRROLATE\INDACATEROL MALEATE
     Dosage: UNK
  5. BEVESPI AEROSPHERE [Concomitant]
     Active Substance: FORMOTEROL FUMARATE\GLYCOPYRROLATE

REACTIONS (2)
  - Spinal fracture [Recovered/Resolved]
  - Pneumonia [Recovered/Resolved]
